FAERS Safety Report 15814660 (Version 4)
Quarter: 2019Q2

REPORT INFORMATION
  Report Type: Report from Study
  Country: US (occurrence: US)
  Receive Date: 20190111
  Receipt Date: 20190617
  Transmission Date: 20190711
  Serious: No
  Sender: FDA-Public Use
  Company Number: US-SA-2019SA007975

PATIENT
  Age: 17 Year
  Sex: Male

DRUGS (5)
  1. ELIGLUSTAT. [Suspect]
     Active Substance: ELIGLUSTAT
     Indication: GAUCHER^S DISEASE
     Dosage: 2 PILLS, QD
     Route: 048
     Dates: start: 20171106
  2. ELIGLUSTAT. [Suspect]
     Active Substance: ELIGLUSTAT
     Dosage: 84 MG, BID
     Route: 048
  3. ELIGLUSTAT. [Suspect]
     Active Substance: ELIGLUSTAT
     Dosage: UNK, QD
     Route: 048
  4. ELIGLUSTAT. [Suspect]
     Active Substance: ELIGLUSTAT
     Dosage: 84 MG, BID
     Route: 048
     Dates: start: 20171006
  5. ELIGLUSTAT. [Suspect]
     Active Substance: ELIGLUSTAT
     Dosage: 84 UNK BID
     Route: 048

REACTIONS (3)
  - Malaise [Unknown]
  - Product use issue [Unknown]
  - Gastrointestinal disorder [Recovered/Resolved]
